FAERS Safety Report 5921406-5 (Version None)
Quarter: 2008Q4

REPORT INFORMATION
  Report Type: 
  Country: None (occurrence: None)
  Receive Date: 20081014
  Receipt Date: 20080925
  Transmission Date: 20090506
  Serious: No
  Sender: FDA-Public Use
  Company Number: 8037455

PATIENT

DRUGS (1)
  1. KEPPRA [Suspect]
     Dosage: IV
     Route: 042

REACTIONS (1)
  - WRONG TECHNIQUE IN DRUG USAGE PROCESS [None]
